FAERS Safety Report 7752492-8 (Version None)
Quarter: 2011Q3

REPORT INFORMATION
  Report Type: 
  Country: None (occurrence: None)
  Receive Date: 20110915
  Receipt Date: 20110914
  Transmission Date: 20111222
  Serious: Yes (Death)
  Sender: FDA-Public Use
  Company Number: PHHY2011NL81472

PATIENT
  Sex: Male

DRUGS (1)
  1. ZOMETA [Suspect]
     Indication: LUNG CANCER METASTATIC
     Dosage: 4 MG/5ML
     Route: 042
     Dates: start: 20110909

REACTIONS (5)
  - DYSPNOEA [None]
  - COUGH [None]
  - FATIGUE [None]
  - THINKING ABNORMAL [None]
  - DEATH [None]
